FAERS Safety Report 6208412-0 (Version None)
Quarter: 2009Q2

REPORT INFORMATION
  Report Type: 
  Country: None (occurrence: None)
  Receive Date: 20090529
  Receipt Date: 20090521
  Transmission Date: 20091009
  Serious: Yes (Hospitalization)
  Sender: FDA-Public Use
  Company Number: JP-NOVOPROD-286552

PATIENT
  Age: 13 Year
  Sex: Male
  Weight: 60 kg

DRUGS (2)
  1. NOVOSEVEN [Suspect]
     Indication: RENAL HAEMORRHAGE
     Dosage: 6 MG, QD
     Route: 042
     Dates: start: 20030210, end: 20090423
  2. FEIBA                              /01034301/ [Concomitant]
     Dosage: 6000 U, QD
     Route: 042
     Dates: start: 20090421, end: 20090423

REACTIONS (2)
  - THROMBOSIS [None]
  - URINARY TRACT OBSTRUCTION [None]
